FAERS Safety Report 4719222-5 (Version None)
Quarter: 2005Q3

REPORT INFORMATION
  Report Type: 
  Country: None (occurrence: None)
  Receive Date: 20050721
  Receipt Date: 20050517
  Transmission Date: 20060218
  Serious: Yes (Hospitalization)
  Sender: FDA-Public Use
  Company Number: JP-SP-2005-00981

PATIENT
  Age: 69 Year
  Sex: Male

DRUGS (2)
  1. IMMUCYST [Suspect]
     Indication: BLADDER CANCER
     Route: 043
     Dates: start: 20050426, end: 20050510
  2. IMMUCYST [Suspect]
     Route: 043
     Dates: start: 20050426, end: 20050510

REACTIONS (4)
  - BLADDER STENOSIS [None]
  - BOVINE TUBERCULOSIS [None]
  - POLLAKIURIA [None]
  - PYREXIA [None]
